FAERS Safety Report 23751496 (Version 1)
Quarter: 2024Q2

REPORT INFORMATION
  Report Type: Spontaneous
  Country: US (occurrence: None)
  Receive Date: 20240416
  Receipt Date: 20240416
  Transmission Date: 20240716
  Serious: No
  Sender: FDA-Public Use
  Company Number: None

PATIENT
  Age: 62 Year
  Sex: Female
  Weight: 61.65 kg

DRUGS (14)
  1. LINZESS [Suspect]
     Active Substance: LINACLOTIDE
     Indication: Constipation
     Dosage: 1  CAPSULE DAILY ORAL?
     Route: 048
     Dates: start: 20240408, end: 20240416
  2. OZEMPIC [Concomitant]
     Active Substance: SEMAGLUTIDE
  3. PREGABALIN [Concomitant]
     Active Substance: PREGABALIN
  4. METOPROLOL SUCCINATE [Concomitant]
     Active Substance: METOPROLOL SUCCINATE
  5. FINASTERIDE [Concomitant]
     Active Substance: FINASTERIDE
  6. OMEPRAZOLE [Concomitant]
     Active Substance: OMEPRAZOLE
  7. CALCIUM [Concomitant]
     Active Substance: CALCIUM
  8. MAGNESIUM [Concomitant]
     Active Substance: MAGNESIUM
  9. ZINC [Concomitant]
     Active Substance: PYRITHIONE ZINC\ZINC\ZINC CHLORIDE
  10. ATORVASTATIN [Concomitant]
  11. DULOXETINE [Concomitant]
     Active Substance: DULOXETINE
  12. FREESTYLE LIBRE 3 [Concomitant]
  13. ALBUTEROL [Concomitant]
  14. PLAQUENIL [Concomitant]

REACTIONS (1)
  - Diarrhoea [None]

NARRATIVE: CASE EVENT DATE: 20240408
